FAERS Safety Report 8455209-7 (Version None)
Quarter: 2012Q2

REPORT INFORMATION
  Report Type: 
  Country: None (occurrence: None)
  Receive Date: 20120614
  Receipt Date: 20120531
  Transmission Date: 20120825
  Serious: Yes (Other)
  Sender: FDA-Public Use
  Company Number: JPI-P-021770

PATIENT
  Age: 49 Year
  Sex: Female
  Weight: 57.1532 kg

DRUGS (4)
  1. XYREM [Suspect]
     Indication: NARCOLEPSY
     Dosage: (UNKNOWN), ORAL (4.0 GM FIRST DOSE/3.5 GM SECOND DOSE), ORAL
     Route: 048
     Dates: start: 20081101
  2. METHYLPHENIDATE HCL [Concomitant]
  3. BUPROPION HYDROCHLORIDE (UNKNOWN) [Concomitant]
  4. CYCLOBENZAPRINE HYDROCHLORIDE (UNKNOWN) [Concomitant]

REACTIONS (5)
  - HYPERSOMNIA [None]
  - UTERINE LEIOMYOMA [None]
  - DYSMENORRHOEA [None]
  - MENORRHAGIA [None]
  - OVARIAN CYST [None]
